FAERS Safety Report 7255050-7 (Version None)
Quarter: 2011Q1

REPORT INFORMATION
  Report Type: 
  Country: None (occurrence: None)
  Receive Date: 20110129
  Receipt Date: 20100317
  Transmission Date: 20110831
  Serious: No
  Sender: FDA-Public Use
  Company Number: US-ABBOTT-10P-163-0632846-00

PATIENT
  Sex: Female

DRUGS (3)
  1. UNKNOWN [Concomitant]
     Indication: PRODUCT USED FOR UNKNOWN INDICATION
  2. HUMIRA [Suspect]
     Indication: CROHN'S DISEASE
     Dosage: DAY 1
     Dates: start: 20100219, end: 20100219
  3. HUMIRA [Suspect]
     Dates: start: 20100306

REACTIONS (1)
  - INJECTION SITE ERYTHEMA [None]
